FAERS Safety Report 4319215-6 (Version None)
Quarter: 2004Q1

REPORT INFORMATION
  Report Type: 
  Country: None (occurrence: None)
  Receive Date: 20040316
  Receipt Date: 20040301
  Transmission Date: 20041129
  Serious: Yes (Other)
  Sender: FDA-Public Use
  Company Number: GBS040314530

PATIENT
  Age: 64 Year
  Sex: Male

DRUGS (4)
  1. CIALIS [Suspect]
     Indication: ERECTILE DYSFUNCTION
     Dosage: 20 MG
     Dates: start: 20040218, end: 20040218
  2. ASPIRIN [Concomitant]
  3. ATORVASTATIN [Concomitant]
  4. INSULIN PORCINE [Concomitant]

REACTIONS (4)
  - BACK PAIN [None]
  - MYALGIA [None]
  - NOCTURIA [None]
  - POLYURIA [None]
